FAERS Safety Report 7412542-5 (Version None)
Quarter: 2011Q2

REPORT INFORMATION
  Report Type: 
  Country: None (occurrence: None)
  Receive Date: 20110413
  Receipt Date: 20110401
  Transmission Date: 20111010
  Serious: Yes (Other)
  Sender: FDA-Public Use
  Company Number: FR-JNJFOC-20100200836

PATIENT
  Sex: Female
  Weight: 68 kg

DRUGS (5)
  1. TRILEPTAL [Concomitant]
     Route: 065
  2. TOPIRAMATE [Suspect]
     Route: 048
  3. TOPIRAMATE [Suspect]
     Route: 048
  4. TOPIRAMATE [Suspect]
     Indication: PARTIAL SEIZURES
     Route: 048
  5. KEPPRA [Suspect]
     Indication: PRODUCT USED FOR UNKNOWN INDICATION
     Route: 065

REACTIONS (2)
  - WEIGHT DECREASED [None]
  - MALNUTRITION [None]
